FAERS Safety Report 24686449 (Version 1)
Quarter: 2024Q4

REPORT INFORMATION
  Report Type: Spontaneous
  Country: US (occurrence: None)
  Receive Date: 20241129
  Receipt Date: 20241129
  Transmission Date: 20250115
  Serious: No
  Sender: Public
  Company Number: None

PATIENT
  Sex: Female

DRUGS (11)
  1. AMBRISENTAN [Suspect]
     Active Substance: AMBRISENTAN
     Indication: Pulmonary arterial hypertension
     Dosage: FREQUENCY : DAILY;?
     Route: 048
  2. COUMADIN [Concomitant]
     Active Substance: WARFARIN SODIUM
  3. LANTUS [Concomitant]
     Active Substance: INSULIN GLARGINE
  4. PROGRAF [Concomitant]
     Active Substance: TACROLIMUS
  5. MYCOPHENOLATE MOFETIL [Concomitant]
     Active Substance: MYCOPHENOLATE MOFETIL
  6. MAGNESIUM [Concomitant]
     Active Substance: MAGNESIUM
  7. PRAVASTATIN SODIUM [Concomitant]
     Active Substance: PRAVASTATIN SODIUM
  8. VITAMIN C [Concomitant]
     Active Substance: ASCORBIC ACID
  9. HUMALOG [Concomitant]
     Active Substance: INSULIN LISPRO
  10. HYDRALAZINE HYDROCHLORIDE [Concomitant]
     Active Substance: HYDRALAZINE HYDROCHLORIDE
  11. SILDENAFIL [Concomitant]
     Active Substance: SILDENAFIL

REACTIONS (1)
  - Therapy interrupted [None]
